FAERS Safety Report 5587720-0 (Version None)
Quarter: 2007Q4

REPORT INFORMATION
  Report Type: 
  Country: None (occurrence: None)
  Receive Date: 20071207
  Receipt Date: 20071207
  Transmission Date: 20080405
  Serious: Yes (Other)
  Sender: FDA-Public Use
  Company Number: 07-181

PATIENT
  Age: 66 Year
  Sex: Male
  Weight: 77.1115 kg

DRUGS (6)
  1. ALEVE [Suspect]
     Indication: BACK PAIN
     Dosage: 220 MG, DAILY, ORAL
     Route: 048
     Dates: start: 20070604
  2. ECHINACEA [Concomitant]
  3. GLUCOSAMINE [Concomitant]
  4. ASPIRIN [Concomitant]
  5. LOVASTATIN [Concomitant]
  6. CIALIS [Concomitant]

REACTIONS (2)
  - ANAPHYLACTIC SHOCK [None]
  - HYPERSENSITIVITY [None]
